FAERS Safety Report 7923724-8 (Version None)
Quarter: 2011Q4

REPORT INFORMATION
  Report Type: 
  Country: None (occurrence: None)
  Receive Date: 20111117
  Receipt Date: 20110208
  Transmission Date: 20120403
  Serious: No
  Sender: FDA-Public Use
  Company Number: US-AMGEN-USASP2011007451

PATIENT
  Sex: Male

DRUGS (3)
  1. ENBREL [Suspect]
     Indication: PSORIATIC ARTHROPATHY
     Dosage: 25 MG, 3 TIMES/WK
     Dates: start: 20041209
  2. VITAMIN D [Concomitant]
  3. ENBREL [Suspect]
     Indication: PSORIASIS

REACTIONS (5)
  - CARPAL TUNNEL SYNDROME [None]
  - BLOOD CALCIUM INCREASED [None]
  - ARTHRALGIA [None]
  - LOOSE BODY IN JOINT [None]
  - RASH GENERALISED [None]
